FAERS Safety Report 5121324-9 (Version None)
Quarter: 2006Q4

REPORT INFORMATION
  Report Type: 
  Country: None (occurrence: None)
  Receive Date: 20061002
  Receipt Date: 20060919
  Transmission Date: 20070319
  Serious: Yes (Other)
  Sender: FDA-Public Use
  Company Number: 2006092988

PATIENT
  Age: 64 Year
  Sex: Female
  Weight: 59 kg

DRUGS (16)
  1. SUTENT [Suspect]
     Indication: RENAL CELL CARCINOMA STAGE UNSPECIFIED
     Dosage: 50 MG, ORAL
     Route: 048
     Dates: start: 20050316, end: 20050718
  2. ZOMETA [Concomitant]
  3. ACETAMINOPHEN [Concomitant]
  4. RABEPRAZOLE SODIUM [Concomitant]
  5. ROCGEL (ALUMINIUM OXIDE) [Concomitant]
  6. PRIMPERAN TAB [Concomitant]
  7. DAFALGAN (PARACETAMOL) [Concomitant]
  8. ACETAMINOPHEN AND TRAMADOL HCL [Concomitant]
  9. VOGALENE (METOPIMAZINE) [Concomitant]
  10. ANAUSIN (METOCLOPRAMIDE HYDROCHLORIDE) [Concomitant]
  11. FORLAX (MACROGOL) [Concomitant]
  12. TRIMEBUTINE (TRIMEBUTINE) [Concomitant]
  13. SPECIALFOLDINE (FOLIC ACID) [Concomitant]
  14. FERROUS SULFATE TAB [Concomitant]
  15. BIRODOGYL (METRONIDAZOLE, SPIRAMYCIN) [Concomitant]
  16. NEOSTIGMINE (NEOSTIGMINE) [Concomitant]

REACTIONS (1)
  - BLOOD CREATINE PHOSPHOKINASE INCREASED [None]
